FAERS Safety Report 5262569-7 (Version None)
Quarter: 2007Q1

REPORT INFORMATION
  Report Type: 
  Country: None (occurrence: None)
  Receive Date: 20070312
  Receipt Date: 20070306
  Transmission Date: 20070707
  Serious: Yes (Hospitalization)
  Sender: FDA-Public Use
  Company Number: FR-BRISTOL-MYERS SQUIBB COMPANY-13706825

PATIENT
  Age: 61 Year
  Sex: Male

DRUGS (16)
  1. APROVEL TABS 300 MG [Suspect]
     Indication: HYPERTENSION
     Route: 048
  2. CHLORHYDRATE DE DILTIAZEM [Suspect]
  3. ALTIZIDE + SPIRONOLACTONE [Suspect]
     Indication: HYPERTENSION
     Dosage: 15MG/25MG
     Dates: end: 20070208
  4. CORTANCYL [Concomitant]
     Dates: start: 20070201, end: 20070204
  5. TERCIAN [Concomitant]
     Dosage: DROPS 4-3-10
  6. EFFEXOR [Concomitant]
  7. DEPAKENE [Concomitant]
  8. IDARAC [Concomitant]
  9. ACETAMINOPHEN [Concomitant]
  10. AUGMENTIN [Concomitant]
     Dates: start: 20070201, end: 20070204
  11. SERETIDE [Concomitant]
  12. SPIRIVA [Concomitant]
  13. BRONCHODUAL [Concomitant]
  14. BRICANYL [Concomitant]
  15. ATROVENT [Concomitant]
  16. SURBRONC [Concomitant]
     Dates: start: 20070125, end: 20070202

REACTIONS (3)
  - DIZZINESS [None]
  - FALL [None]
  - ORTHOSTATIC HYPOTENSION [None]
